FAERS Safety Report 18253071 (Version 1)
Quarter: 2020Q3

REPORT INFORMATION
  Report Type: Spontaneous
  Country: JP (occurrence: JP)
  Receive Date: 20200910
  Receipt Date: 20200910
  Transmission Date: 20201103
  Serious: Yes (Other)
  Sender: FDA-Public Use
  Company Number: JP-MACLEODS PHARMACEUTICALS US LTD-MAC2020027954

PATIENT

DRUGS (5)
  1. LITHIUM CARBONATE. [Concomitant]
     Active Substance: LITHIUM CARBONATE
     Indication: BIPOLAR DISORDER
     Dosage: 600 MILLIGRAM, QD
     Route: 065
  2. BROTIZOLAM [Concomitant]
     Active Substance: BROTIZOLAM
     Indication: BIPOLAR DISORDER
     Dosage: 0.25 MILLIGRAM, QD
     Route: 065
  3. SERTRALINE HYDROCHLORIDE. [Concomitant]
     Active Substance: SERTRALINE HYDROCHLORIDE
     Indication: BIPOLAR DISORDER
     Dosage: 75 MILLIGRAM, QD
     Route: 065
  4. QUETIAPINE FUMARATE. [Concomitant]
     Active Substance: QUETIAPINE FUMARATE
     Indication: BIPOLAR DISORDER
     Dosage: 50 MILLIGRAM, QD
     Route: 065
  5. OLANZAPINE 10 MG [Suspect]
     Active Substance: OLANZAPINE
     Indication: MANIA
     Dosage: 10 MILLIGRAM, QD
     Route: 065

REACTIONS (5)
  - Oedema [Recovered/Resolved]
  - Liver disorder [Recovered/Resolved]
  - Eosinophilia [Recovered/Resolved]
  - Oedema peripheral [Recovered/Resolved]
  - Drug hypersensitivity [Recovered/Resolved]
